FAERS Safety Report 16318458 (Version 1)
Quarter: 2019Q2

REPORT INFORMATION
  Report Type: Spontaneous
  Country: US (occurrence: US)
  Receive Date: 20190516
  Receipt Date: 20190516
  Transmission Date: 20190711
  Serious: Yes (Death)
  Sender: FDA-Public Use
  Company Number: US-ROCHE-2320186

PATIENT
  Sex: Male

DRUGS (14)
  1. ATORVASTATIN [Concomitant]
     Active Substance: ATORVASTATIN
  2. ENTRESTO [Concomitant]
     Active Substance: SACUBITRIL\VALSARTAN
  3. FINASTERIDE. [Concomitant]
     Active Substance: FINASTERIDE
  4. METFORMIN [Concomitant]
     Active Substance: METFORMIN HYDROCHLORIDE
     Dosage: ONGOING: UNKNOWN
     Route: 065
  5. TORSEMIDE. [Concomitant]
     Active Substance: TORSEMIDE
  6. LIDOCAINE. [Concomitant]
     Active Substance: LIDOCAINE
  7. PROSCAR [Concomitant]
     Active Substance: FINASTERIDE
  8. GABAPENTIN. [Concomitant]
     Active Substance: GABAPENTIN
  9. LISINOPRIL. [Concomitant]
     Active Substance: LISINOPRIL
  10. ESBRIET [Suspect]
     Active Substance: PIRFENIDONE
     Indication: PULMONARY FIBROSIS
     Route: 048
     Dates: start: 20190209
  11. TAMULOSIN [Concomitant]
     Active Substance: TAMSULOSIN
  12. ELIQUIS [Concomitant]
     Active Substance: APIXABAN
  13. IPRATROPIUM [Concomitant]
     Active Substance: IPRATROPIUM
  14. METOPROLOL. [Concomitant]
     Active Substance: METOPROLOL

REACTIONS (1)
  - Death [Fatal]
